FAERS Safety Report 7261179-X (Version None)
Quarter: 2011Q1

REPORT INFORMATION
  Report Type: 
  Country: None (occurrence: None)
  Receive Date: 20110130
  Receipt Date: 20100917
  Transmission Date: 20110831
  Serious: No
  Sender: FDA-Public Use
  Company Number: US-ABBOTT-10P-163-0671994-00

PATIENT
  Age: 36 Year
  Sex: Female

DRUGS (13)
  1. PERCOCET [Concomitant]
     Indication: PAIN
  2. RESTORIL [Concomitant]
     Indication: INSOMNIA
  3. COUMADIN [Concomitant]
     Indication: COAGULOPATHY
  4. IMODIUM [Concomitant]
     Indication: PRODUCT USED FOR UNKNOWN INDICATION
  5. TYLENOL MIGRAINE [Concomitant]
     Indication: PRODUCT USED FOR UNKNOWN INDICATION
  6. FLEXTOR [Concomitant]
     Indication: PRODUCT USED FOR UNKNOWN INDICATION
  7. HYOMAX [Concomitant]
     Indication: CROHN'S DISEASE
     Dosage: 2 DOSES
  8. HUMIRA [Suspect]
     Indication: CROHN'S DISEASE
     Dates: start: 20100821
  9. MULTI-VITAMINS [Concomitant]
     Indication: PRODUCT USED FOR UNKNOWN INDICATION
  10. SERAQUEL XL [Concomitant]
     Indication: BIPOLAR DISORDER
  11. SOMA [Concomitant]
     Indication: PRODUCT USED FOR UNKNOWN INDICATION
  12. KLONOPIN [Concomitant]
     Indication: PRODUCT USED FOR UNKNOWN INDICATION
  13. LIDODERM [Concomitant]
     Indication: PRODUCT USED FOR UNKNOWN INDICATION

REACTIONS (2)
  - COUGH [None]
  - WHEEZING [None]
